FAERS Safety Report 9295430 (Version 1)
Quarter: 2013Q2

REPORT INFORMATION
  Report Type: Spontaneous
  Country: CH (occurrence: CH)
  Receive Date: 20130517
  Receipt Date: 20130517
  Transmission Date: 20140414
  Serious: Yes (Other)
  Sender: FDA-Public Use
  Company Number: CH-SANOFI-AVENTIS-2013SA047695

PATIENT
  Age: 37 Year
  Sex: Female

DRUGS (6)
  1. TELFAST [Suspect]
     Indication: URTICARIA
     Route: 048
     Dates: start: 20130303, end: 20130304
  2. ATARAX [Suspect]
     Indication: URTICARIA
     Route: 048
     Dates: start: 20121217, end: 20130303
  3. CETALLERG [Suspect]
     Indication: URTICARIA
     Route: 065
     Dates: start: 20130105, end: 20130303
  4. BIOTIN [Suspect]
     Indication: PRODUCT USED FOR UNKNOWN INDICATION
     Route: 065
     Dates: start: 20130218, end: 20130303
  5. RANITIDINE HYDROCHLORIDE [Suspect]
     Indication: GASTROOESOPHAGEAL REFLUX DISEASE
     Route: 065
     Dates: start: 20130301, end: 20130303
  6. PASSIFLORA INCARNATA FLOWER [Suspect]
     Indication: PRODUCT USED FOR UNKNOWN INDICATION
     Route: 065

REACTIONS (2)
  - Exposure during pregnancy [Unknown]
  - Pregnancy [None]
